FAERS Safety Report 5483846-0 (Version None)
Quarter: 2007Q4

REPORT INFORMATION
  Report Type: 
  Country: None (occurrence: None)
  Receive Date: 20071010
  Receipt Date: 20071010
  Transmission Date: 20080405
  Serious: Yes (Life-Threatening, Hospitalization, Other)
  Sender: FDA-Public Use
  Company Number: None

PATIENT
  Age: 45 Year
  Sex: Female
  Weight: 54.4316 kg

DRUGS (4)
  1. CHANTIX [Suspect]
     Indication: SMOKING CESSATION THERAPY
     Dates: start: 20070423, end: 20070908
  2. PROAIR HFA [Suspect]
     Indication: CHRONIC OBSTRUCTIVE PULMONARY DISEASE
     Dosage: 2 PUFFS 4 TIMES A DAY
     Dates: start: 20070831, end: 20070909
  3. GEODON [Suspect]
     Dosage: 20MG INJECTION IM
     Route: 030
  4. GEODON [Concomitant]
     Dosage: 20MG INJECTION IM
     Route: 030

REACTIONS (1)
  - MENTAL DISORDER [None]
